FAERS Safety Report 12746571 (Version 1)
Quarter: 2016Q3

REPORT INFORMATION
  Report Type: Spontaneous
  Country: US (occurrence: US)
  Receive Date: 20160915
  Receipt Date: 20160915
  Transmission Date: 20161109
  Serious: Yes (Other)
  Sender: FDA-Public Use
  Company Number: None

PATIENT
  Age: 37 Year
  Sex: Female

DRUGS (2)
  1. VISINE FOR CONTACTS JOHNSON AND JOHNSON [Suspect]
     Active Substance: GLYCERIN\HYPROMELLOSES
     Indication: DRY EYE
     Dosage: OTHER STRENGTH:;OTHER DOSE:;OTHER FREQUENCY:AS NEEDED;OTHER ROUTE:
     Route: 047
     Dates: start: 20160828, end: 20160908
  2. VISINE FOR CONTACTS JOHNSON AND JOHNSON [Suspect]
     Active Substance: GLYCERIN\HYPROMELLOSES
     Indication: OCULAR HYPERAEMIA
     Dosage: OTHER STRENGTH:;OTHER DOSE:;OTHER FREQUENCY:AS NEEDED;OTHER ROUTE:
     Route: 047
     Dates: start: 20160828, end: 20160908

REACTIONS (4)
  - Erythema [None]
  - Burning sensation [None]
  - Skin discolouration [None]
  - Skin exfoliation [None]

NARRATIVE: CASE EVENT DATE: 20160908
